FAERS Safety Report 15976156 (Version 4)
Quarter: 2019Q2

REPORT INFORMATION
  Report Type: Spontaneous
  Country: US (occurrence: US)
  Receive Date: 20190218
  Receipt Date: 20190628
  Transmission Date: 20190711
  Serious: No
  Sender: FDA-Public Use
  Company Number: US-PFIZER INC-2019063998

PATIENT
  Age: 66 Year
  Sex: Male
  Weight: 102 kg

DRUGS (1)
  1. DEPO-TESTOSTERONE [Suspect]
     Active Substance: TESTOSTERONE CYPIONATE
     Indication: BLOOD TESTOSTERONE DECREASED
     Dosage: 0.5 ML, WEEKLY
     Route: 030

REACTIONS (11)
  - Haematocrit increased [Unknown]
  - Mean platelet volume increased [Unknown]
  - Monocyte percentage increased [Unknown]
  - Haemoglobin increased [Unknown]
  - Neutrophil count decreased [Unknown]
  - Product deposit [Unknown]
  - Red cell distribution width increased [Unknown]
  - Monocyte count increased [Unknown]
  - Poor quality product administered [Unknown]
  - Therapeutic product effect incomplete [Unknown]
  - Red blood cell count increased [Unknown]

NARRATIVE: CASE EVENT DATE: 201811
